FAERS Safety Report 23182043 (Version 2)
Quarter: 2024Q1

REPORT INFORMATION
  Report Type: Other
  Country: US (occurrence: None)
  Receive Date: 20231114
  Receipt Date: 20240223
  Transmission Date: 20240410
  Serious: Yes (Other)
  Sender: FDA-Public Use
  Company Number: US-ROCHE-3209845

PATIENT
  Age: 30 Year
  Sex: Female
  Weight: 69.462 kg

DRUGS (2)
  1. OCREVUS [Suspect]
     Active Substance: OCRELIZUMAB
     Indication: Relapsing-remitting multiple sclerosis
     Dosage: THEN 600MG FOR EVERY 6 MONTHS. ?LAST DOSE: 28/APR/2022
     Route: 042
     Dates: start: 20211027
  2. OCREVUS [Suspect]
     Active Substance: OCRELIZUMAB
     Indication: Adverse drug reaction

REACTIONS (10)
  - Multiple sclerosis [Unknown]
  - Optic neuritis [Recovering/Resolving]
  - Maternal exposure before pregnancy [Unknown]
  - Hypoaesthesia [Unknown]
  - Paraesthesia [Unknown]
  - Vision blurred [Unknown]
  - Balance disorder [Unknown]
  - Pruritus [Unknown]
  - Throat irritation [Unknown]
  - JC polyomavirus test positive [Unknown]
